FAERS Safety Report 13156489 (Version 1)
Quarter: 2017Q1

REPORT INFORMATION
  Report Type: Spontaneous
  Country: CN (occurrence: CN)
  Receive Date: 20170126
  Receipt Date: 20170126
  Transmission Date: 20170428
  Serious: Yes (Other)
  Sender: FDA-Public Use
  Company Number: CN-PFIZER INC-2017034405

PATIENT
  Age: 83 Year
  Sex: Female

DRUGS (6)
  1. NORVASC [Suspect]
     Active Substance: AMLODIPINE BESYLATE
     Dosage: 2 TABLETS, 1X/DAY
     Route: 048
     Dates: start: 20161028, end: 20161028
  2. SPIROLACTONE [Concomitant]
     Active Substance: SPIRONOLACTONE
  3. HEPARIN CALCIUM [Concomitant]
     Active Substance: HEPARIN CALCIUM
  4. NORVASC [Suspect]
     Active Substance: AMLODIPINE BESYLATE
     Indication: HYPERTENSION
     Dosage: 1 TABLET, 1X/DAY
     Route: 048
     Dates: start: 20161025, end: 20161027
  5. BUMETANIDE. [Concomitant]
     Active Substance: BUMETANIDE
  6. NORVASC [Suspect]
     Active Substance: AMLODIPINE BESYLATE
     Dosage: 1 TABLET, 1X/DAY
     Route: 048
     Dates: start: 20161029, end: 20161029

REACTIONS (5)
  - Confusional state [Recovering/Resolving]
  - Hallucination, visual [Not Recovered/Not Resolved]
  - Tic [Recovering/Resolving]
  - Opisthotonus [Recovering/Resolving]
  - Muscular weakness [Not Recovered/Not Resolved]

NARRATIVE: CASE EVENT DATE: 20161029
